FAERS Safety Report 25797274 (Version 1)
Quarter: 2025Q3

REPORT INFORMATION
  Report Type: Spontaneous
  Country: AU (occurrence: AU)
  Receive Date: 20250912
  Receipt Date: 20250912
  Transmission Date: 20251020
  Serious: Yes (Other)
  Sender: BAUSCH AND LOMB
  Company Number: AU-BAUSCH-BH-2025-017354

PATIENT
  Sex: Female

DRUGS (1)
  1. PLENVU [Suspect]
     Active Substance: ASCORBIC ACID\POLYETHYLENE GLYCOL 3350\POTASSIUM CHLORIDE\SODIUM ASCORBATE\SODIUM CHLORIDE\SODIUM SU
     Indication: Bowel preparation
     Dosage: 1 DOSAGE FORM, BID (TOOK FIRST DOSE OF PLENVU AT 6AM AND SECOND DOSE AT 9AM ON THE SAME DAY)
     Route: 065
     Dates: start: 20250805, end: 20250805

REACTIONS (11)
  - Dyschezia [Unknown]
  - Mucous stools [Unknown]
  - Hypotension [Unknown]
  - Inflammatory marker increased [Unknown]
  - Abdominal rigidity [Recovered/Resolved]
  - Diarrhoea [Unknown]
  - Fatigue [Unknown]
  - Tachycardia [Unknown]
  - Vomiting [Unknown]
  - Abdominal pain [Recovered/Resolved]
  - Therapeutic product effect delayed [Unknown]

NARRATIVE: CASE EVENT DATE: 20250805
